FAERS Safety Report 4531391-9 (Version None)
Quarter: 2004Q4

REPORT INFORMATION
  Report Type: 
  Country: None (occurrence: None)
  Receive Date: 20041216
  Receipt Date: 20041127
  Transmission Date: 20050328
  Serious: Yes (Other)
  Sender: FDA-Public Use
  Company Number: USA041184656

PATIENT
  Age: 79 Year
  Sex: Female

DRUGS (1)
  1. XIGRIS [Suspect]
     Indication: STREPTOCOCCAL SEPSIS
     Dates: start: 20041126, end: 20041127

REACTIONS (1)
  - EMBOLIC STROKE [None]
